FAERS Safety Report 6277266-9 (Version None)
Quarter: 2009Q3

REPORT INFORMATION
  Report Type: 
  Country: None (occurrence: None)
  Receive Date: 20090722
  Receipt Date: 20090331
  Transmission Date: 20100115
  Serious: No
  Sender: FDA-Public Use
  Company Number: US-BRISTOL-MYERS SQUIBB COMPANY-14536080

PATIENT
  Age: 52 Year
  Sex: Male
  Weight: 157 kg

DRUGS (3)
  1. COUMADIN [Suspect]
     Dates: end: 20090101
  2. LOVENOX [Suspect]
     Indication: PROPHYLAXIS
     Dosage: INTERRUPTED ON 19FEB09.
     Dates: start: 20090101
  3. DILANTIN [Concomitant]

REACTIONS (1)
  - INJECTION SITE HAEMORRHAGE [None]
